FAERS Safety Report 13022697 (Version 4)
Quarter: 2017Q1

REPORT INFORMATION
  Report Type: Report from Study
  Country: US (occurrence: US)
  Receive Date: 20161213
  Receipt Date: 20170109
  Transmission Date: 20170428
  Serious: Yes (Death)
  Sender: FDA-Public Use
  Company Number: US-PACIRA PHARMACEUTICALS, INC.-2016DEPUS00701

PATIENT
  Age: 21 Year
  Sex: Male
  Weight: 70 kg

DRUGS (6)
  1. ATOVAQUONE. [Concomitant]
     Active Substance: ATOVAQUONE
     Dosage: 1500 UNK, DAILY
     Route: 048
     Dates: start: 20160920
  2. MERCAPTOPURINE. [Concomitant]
     Active Substance: MERCAPTOPURINE
     Dosage: 100 MG, DAILY
     Route: 048
     Dates: start: 20161018
  3. ACYCLOVIR. [Concomitant]
     Active Substance: ACYCLOVIR
     Dosage: 400 MG, BID
     Route: 048
     Dates: start: 20161013
  4. MORPHINE [Concomitant]
     Active Substance: MORPHINE
     Indication: PAIN
     Dosage: 15 MG, PRN (TAKEN NIGHT BEFORE EVENT)
     Route: 048
     Dates: start: 20161029
  5. DEPOCYT [Suspect]
     Active Substance: CYTARABINE
     Indication: NEOPLASM PROPHYLAXIS
     Dosage: 25 MG, UNK ^ONCE/VISIT^
     Route: 037
     Dates: start: 20160106, end: 20161021
  6. METHOTREXATE. [Concomitant]
     Active Substance: METHOTREXATE
     Dosage: 35 MG EVERY 7 DAYS
     Route: 048
     Dates: start: 20161018

REACTIONS (1)
  - Neutropenic sepsis [Fatal]

NARRATIVE: CASE EVENT DATE: 20161030
